FAERS Safety Report 7128117-1 (Version None)
Quarter: 2010Q4

REPORT INFORMATION
  Report Type: 
  Country: None (occurrence: None)
  Receive Date: 20101130
  Receipt Date: 20101124
  Transmission Date: 20110411
  Serious: Yes (Life-Threatening, Other)
  Sender: FDA-Public Use
  Company Number: US-US-EMD SERONO, INC.-7026617

PATIENT
  Sex: Female

DRUGS (3)
  1. REBIF [Suspect]
     Indication: MULTIPLE SCLEROSIS
     Route: 058
     Dates: start: 20100210
  2. OXYCODONE [Concomitant]
     Indication: PAIN
  3. VALIUM [Concomitant]

REACTIONS (8)
  - ABDOMINAL DISCOMFORT [None]
  - BALANCE DISORDER [None]
  - LOSS OF CONSCIOUSNESS [None]
  - MULTIPLE SCLEROSIS RELAPSE [None]
  - MUSCLE SPASMS [None]
  - NEURALGIA [None]
  - PAIN [None]
  - RESPIRATORY FAILURE [None]
